FAERS Safety Report 21333973 (Version 11)
Quarter: 2025Q4

REPORT INFORMATION
  Report Type: Spontaneous
  Country: US (occurrence: US)
  Receive Date: 20220914
  Receipt Date: 20251214
  Transmission Date: 20260117
  Serious: No
  Sender: PFIZER
  Company Number: US-PFIZER INC-PV202200063169

PATIENT
  Age: 75 Year
  Sex: Male

DRUGS (7)
  1. MEKTOVI [Suspect]
     Active Substance: BINIMETINIB
     Indication: Lung neoplasm malignant
     Dosage: 15 MG, 2X/DAY (1 TABLET IN THE MORNING AND 1 TABLET AT NIGHT)
     Route: 048
  2. MEKTOVI [Suspect]
     Active Substance: BINIMETINIB
     Dosage: 45 MG, DAILY (2 TABLETS 9 AM AND 1 TABLET 9 PM)
     Route: 048
  3. MEKTOVI [Suspect]
     Active Substance: BINIMETINIB
     Dosage: 45 MG, DAILY (15 MG 2 PO Q AM 1 PO Q PM)
     Route: 048
  4. MEKTOVI [Suspect]
     Active Substance: BINIMETINIB
     Dosage: 45 MG, DAILY (15 MG 2 TABLETS IN THE MORNING, 1 TABLET IN THE EVENING) QUANTITY: 90, REFILLS: 5
     Route: 048
  5. MEKTOVI [Suspect]
     Active Substance: BINIMETINIB
     Dosage: 45 MG, (15MG TABLETS- TAKE 2 TABLETS IN THE MORNING AND 1 TABLET IN THE EVENING 12 HOURS APART)
     Route: 048
  6. BRAFTOVI [Concomitant]
     Active Substance: ENCORAFENIB
     Indication: Lung neoplasm malignant
     Dosage: 75 MG
  7. BRAFTOVI [Concomitant]
     Active Substance: ENCORAFENIB
     Dosage: 150 MG, 1X/DAY (2 CAPSULES BY MOUTH ONCE DAILY)
     Route: 048

REACTIONS (1)
  - Pruritus [Unknown]
